FAERS Safety Report 7954614-2 (Version None)
Quarter: 2011Q4

REPORT INFORMATION
  Report Type: 
  Country: None (occurrence: None)
  Receive Date: 20111202
  Receipt Date: 20111129
  Transmission Date: 20120403
  Serious: Yes (Death, Other)
  Sender: FDA-Public Use
  Company Number: PHEH2011US010221

PATIENT
  Sex: Male

DRUGS (2)
  1. EXJADE [Suspect]
     Indication: MYELODYSPLASTIC SYNDROME
     Dosage: 2250 MG WEEKLY
     Route: 048
     Dates: start: 20060725
  2. BETA BLOCKING AGENTS [Concomitant]

REACTIONS (3)
  - DYSPNOEA [None]
  - CARDIAC DISORDER [None]
  - SEPTIC SHOCK [None]
